FAERS Safety Report 7656488-6 (Version None)
Quarter: 2011Q3

REPORT INFORMATION
  Report Type: 
  Country: None (occurrence: None)
  Receive Date: 20110804
  Receipt Date: 20100803
  Transmission Date: 20111222
  Serious: No
  Sender: FDA-Public Use
  Company Number: US-BAUSCH-2010BL004277

PATIENT
  Age: 63 Year
  Sex: Male

DRUGS (6)
  1. SIMVASTATIN [Concomitant]
     Indication: BLOOD CHOLESTEROL INCREASED
     Route: 048
  2. ZYRTEC [Concomitant]
     Indication: HYPERSENSITIVITY
     Route: 048
  3. ASPIRIN [Concomitant]
  4. OPCON-A [Suspect]
     Indication: EYE PRURITUS
     Route: 047
     Dates: start: 20100715, end: 20100720
  5. HYDROCHLOROTHIAZIDE [Concomitant]
     Indication: HYPERTENSION
  6. OPCON-A [Suspect]
     Indication: EYE DISCHARGE
     Route: 047
     Dates: start: 20100715, end: 20100720

REACTIONS (2)
  - DRUG HYPERSENSITIVITY [None]
  - OCULAR HYPERAEMIA [None]
